FAERS Safety Report 19798410 (Version 1)
Quarter: 2021Q3

REPORT INFORMATION
  Report Type: Spontaneous
  Country: US (occurrence: US)
  Receive Date: 20210906
  Receipt Date: 20210906
  Transmission Date: 20211014
  Serious: Yes (Other)
  Sender: FDA-Public Use
  Company Number: US-ELI_LILLY_AND_COMPANY-US202108011719

PATIENT
  Sex: Female

DRUGS (1)
  1. TRULICITY [Suspect]
     Active Substance: DULAGLUTIDE
     Indication: DIABETES MELLITUS
     Dosage: 0.75 MG, UNKNOWN
     Route: 058

REACTIONS (8)
  - Balance disorder [Not Recovered/Not Resolved]
  - Malaise [Unknown]
  - Gait disturbance [Unknown]
  - Foot fracture [Not Recovered/Not Resolved]
  - Thrombosis [Unknown]
  - Skin cancer [Unknown]
  - Herpes zoster [Unknown]
  - Pain in extremity [Not Recovered/Not Resolved]
